FAERS Safety Report 18080260 (Version 1)
Quarter: 2020Q3

REPORT INFORMATION
  Report Type: Report from Study
  Country: GB (occurrence: GB)
  Receive Date: 20200728
  Receipt Date: 20200728
  Transmission Date: 20201103
  Serious: Yes (Other)
  Sender: FDA-Public Use
  Company Number: NVSC2020GB209982

PATIENT
  Sex: Male

DRUGS (1)
  1. OMNITROPE [Suspect]
     Active Substance: SOMATROPIN
     Indication: GROWTH HORMONE DEFICIENCY
     Dosage: 0.3 MG, QD
     Route: 058

REACTIONS (7)
  - Influenza like illness [Unknown]
  - Nervous system disorder [Unknown]
  - Concomitant disease progression [Unknown]
  - Endocrine disorder [Unknown]
  - Coronavirus infection [Unknown]
  - Dyspnoea [Unknown]
  - Blood pressure increased [Unknown]
